FAERS Safety Report 6306673-0 (Version None)
Quarter: 2009Q3

REPORT INFORMATION
  Report Type: 
  Country: None (occurrence: None)
  Receive Date: 20090811
  Receipt Date: 20090811
  Transmission Date: 20100115
  Serious: Yes (Death)
  Sender: FDA-Public Use
  Company Number: None

PATIENT
  Sex: Female
  Weight: 78.1094 kg

DRUGS (2)
  1. SORAFENIB [Suspect]
     Indication: PANCREATIC CARCINOMA
     Dosage: 400 MG BID PO
     Route: 048
     Dates: start: 20090630, end: 20090727
  2. ERLOTINIB [Suspect]
     Indication: PANCREATIC CARCINOMA
     Dosage: 150 MG DAILY PO
     Route: 048
     Dates: start: 20090630, end: 20090727

REACTIONS (4)
  - LIVER FUNCTION TEST ABNORMAL [None]
  - MALIGNANT NEOPLASM PROGRESSION [None]
  - PANCREATIC CARCINOMA [None]
  - SEPTIC SHOCK [None]
